FAERS Safety Report 14798474 (Version 1)
Quarter: 2018Q2

REPORT INFORMATION
  Report Type: Spontaneous
  Country: US (occurrence: US)
  Receive Date: 20180424
  Receipt Date: 20180424
  Transmission Date: 20180711
  Serious: No
  Sender: FDA-Public Use
  Company Number: US-PFIZER INC-2018165090

PATIENT

DRUGS (1)
  1. VFEND [Suspect]
     Active Substance: VORICONAZOLE
     Indication: AMYOTROPHIC LATERAL SCLEROSIS
     Dosage: UNK

REACTIONS (2)
  - Fungal infection [Unknown]
  - Product use in unapproved indication [Unknown]
